FAERS Safety Report 12978798 (Version 1)
Quarter: 2016Q4

REPORT INFORMATION
  Report Type: Spontaneous
  Country: JP (occurrence: JP)
  Receive Date: 20161128
  Receipt Date: 20161128
  Transmission Date: 20170207
  Serious: Yes (Other)
  Sender: FDA-Public Use
  Company Number: JP-PFIZER INC-2016474264

PATIENT
  Age: 12 Year
  Sex: Female

DRUGS (8)
  1. CALONAL [Concomitant]
     Active Substance: ACETAMINOPHEN
     Indication: UPPER RESPIRATORY TRACT INFLAMMATION
     Dosage: 300 MG, AS NEEDED
     Route: 048
     Dates: start: 20160930, end: 20161002
  2. MUCODYNE [Concomitant]
     Active Substance: CARBOCYSTEINE
     Indication: COUGH
     Dosage: 500 MG, 3X/DAY
     Route: 048
     Dates: start: 20161003, end: 20161009
  3. MEPTIN MINITAB [Concomitant]
     Indication: COUGH
     Dosage: 25 UG, 3X/DAY
     Route: 048
     Dates: start: 20161003, end: 20161009
  4. MINOMYCIN 100MG [Suspect]
     Active Substance: MINOCYCLINE HYDROCHLORIDE
     Indication: MYCOPLASMA INFECTION
     Dosage: 200 MG, 1X/DAY
     Route: 041
     Dates: start: 20161001, end: 20161002
  5. ZITHROMAC 250MG [Suspect]
     Active Substance: AZITHROMYCIN DIHYDRATE
     Indication: MYCOPLASMA INFECTION
     Dosage: 500 MG, 1X/DAY
     Route: 048
     Dates: start: 20160930, end: 20161002
  6. MEDICON /00048102/ [Concomitant]
     Active Substance: DEXTROMETHORPHAN HYDROBROMIDE
     Indication: COUGH
     Dosage: 15 MG, 3X/DAY
     Route: 048
     Dates: start: 20161003, end: 20161009
  7. KAKKONTO /07985901/ [Concomitant]
     Indication: UPPER RESPIRATORY TRACT INFLAMMATION
     Dosage: 6 DF, 3X/DAY
     Route: 048
     Dates: start: 20160930, end: 20161002
  8. SP TROCHES [Concomitant]
     Active Substance: DEQUALINIUM CHLORIDE
     Indication: UPPER RESPIRATORY TRACT INFLAMMATION
     Dosage: 0.25 MG, UNK
     Route: 048
     Dates: start: 20160930, end: 20161002

REACTIONS (1)
  - Tendonitis [Recovered/Resolved]

NARRATIVE: CASE EVENT DATE: 20161005
